FAERS Safety Report 14433295 (Version 1)
Quarter: 2018Q1

REPORT INFORMATION
  Report Type: Spontaneous
  Country: US (occurrence: US)
  Receive Date: 20180124
  Receipt Date: 20180124
  Transmission Date: 20180509
  Serious: No
  Sender: FDA-Public Use
  Company Number: US-PCCINC-2017-PEL-003138

PATIENT

DRUGS (4)
  1. GABLOFEN [Suspect]
     Active Substance: BACLOFEN
     Indication: MUSCLE SPASTICITY
     Dosage: 720 ?G, QD
     Route: 037
  2. GABLOFEN [Suspect]
     Active Substance: BACLOFEN
     Indication: CEREBROVASCULAR ACCIDENT
  3. MORPHINE [Interacting]
     Active Substance: MORPHINE
     Indication: MUSCLE SPASTICITY
     Dosage: 1.4 MG, QD
     Route: 037
  4. MORPHINE [Interacting]
     Active Substance: MORPHINE
     Indication: CEREBROVASCULAR ACCIDENT

REACTIONS (3)
  - Device malfunction [Recovered/Resolved]
  - Off label use [Unknown]
  - Withdrawal syndrome [Unknown]

NARRATIVE: CASE EVENT DATE: 20170718
